FAERS Safety Report 13742534 (Version 1)
Quarter: 2017Q3

REPORT INFORMATION
  Report Type: Spontaneous
  Country: CN (occurrence: CN)
  Receive Date: 20170711
  Receipt Date: 20170711
  Transmission Date: 20171127
  Serious: Yes (Hospitalization)
  Sender: FDA-Public Use
  Company Number: CN-BAYER-2017-128186

PATIENT
  Age: 63 Year
  Sex: Male

DRUGS (2)
  1. IOPROMIDE [Suspect]
     Active Substance: IOPROMIDE
     Indication: CHEST PAIN
  2. IOPROMIDE [Suspect]
     Active Substance: IOPROMIDE
     Indication: DIAGNOSTIC PROCEDURE
     Dosage: 80 ML, ONCE
     Route: 042
     Dates: start: 20170626, end: 20170626

REACTIONS (3)
  - Chest discomfort [None]
  - Respiratory rate increased [None]
  - Blood pressure increased [None]

NARRATIVE: CASE EVENT DATE: 20170626
